FAERS Safety Report 6923192-9 (Version None)
Quarter: 2010Q3

REPORT INFORMATION
  Report Type: 
  Country: None (occurrence: None)
  Receive Date: 20100813
  Receipt Date: 20100802
  Transmission Date: 20110219
  Serious: Yes (Other)
  Sender: FDA-Public Use
  Company Number: DE-NOVOPROD-312552

PATIENT
  Sex: Male
  Weight: 21 kg

DRUGS (1)
  1. NORDITROPIN NORDIFLEX [Suspect]
     Indication: DWARFISM
     Dosage: .5 MG, QD
     Route: 058
     Dates: start: 20090129, end: 20100729

REACTIONS (1)
  - OSTEONECROSIS [None]
